FAERS Safety Report 4366786-X (Version None)
Quarter: 2004Q2

REPORT INFORMATION
  Report Type: 
  Country: None (occurrence: None)
  Receive Date: 20040524
  Receipt Date: 20040518
  Transmission Date: 20050107
  Serious: Yes (Hospitalization)
  Sender: FDA-Public Use
  Company Number: STA-AE-04-MTX-201

PATIENT
  Age: 68 Year
  Sex: Female

DRUGS (8)
  1. RHEUMATREX [Suspect]
     Indication: RHEUMATOID ARTHRITIS
     Dosage: 2 MG 1X PER 1 WK, ORAL
     Route: 048
     Dates: start: 20040408, end: 20040415
  2. LANSOPRAZOLE [Concomitant]
  3. ZYRTEC [Concomitant]
  4. PREDNISOLONE [Concomitant]
  5. BLOPRESS (CANDESARTAN CILEXETIL) [Concomitant]
  6. LOXONIN (LOXOPROFEN SODIUM) [Concomitant]
  7. VOLTAREN [Concomitant]
  8. LASIX [Concomitant]

REACTIONS (8)
  - ARRHYTHMIA [None]
  - CARDIAC FAILURE [None]
  - CEREBRAL INFARCTION [None]
  - HYPOTENSION [None]
  - MELAENA [None]
  - MYDRIASIS [None]
  - PANCYTOPENIA [None]
  - STOMATITIS [None]
